FAERS Safety Report 5079444-3 (Version None)
Quarter: 2006Q3

REPORT INFORMATION
  Report Type: 
  Country: None (occurrence: None)
  Receive Date: 20060814
  Receipt Date: 20060508
  Transmission Date: 20061208
  Serious: Yes (Hospitalization, Other)
  Sender: FDA-Public Use
  Company Number: PHBS2006JP06961

PATIENT
  Age: 35 Year
  Sex: Female
  Weight: 49 kg

DRUGS (2)
  1. NEORAL [Suspect]
     Indication: PSORIASIS
     Dosage: 100 MG/D
     Route: 048
     Dates: start: 20001030
  2. BETAMETHASONE VALERATE [Concomitant]

REACTIONS (10)
  - BLOOD CALCIUM DECREASED [None]
  - BONE DENSITY DECREASED [None]
  - BONE DISORDER [None]
  - BONE PAIN [None]
  - DEOXYPYRIDINOLINE URINE INCREASED [None]
  - HYPOMAGNESAEMIA [None]
  - MYOMECTOMY [None]
  - OSTEOPOROSIS [None]
  - SPINAL COMPRESSION FRACTURE [None]
  - UTERINE LEIOMYOMA [None]
